FAERS Safety Report 4918468-0 (Version None)
Quarter: 2006Q1

REPORT INFORMATION
  Report Type: 
  Country: None (occurrence: None)
  Receive Date: 20060222
  Receipt Date: 20060213
  Transmission Date: 20060701
  Serious: Yes (Other)
  Sender: FDA-Public Use
  Company Number: PHRM2006FR00800

PATIENT
  Age: 58 Year
  Sex: Female

DRUGS (3)
  1. DEROXAT [Concomitant]
     Route: 048
  2. STABLON [Concomitant]
     Route: 048
  3. COTAREG [Suspect]
     Indication: HYPERTENSION
     Dosage: 1 DF, QD
     Route: 048
     Dates: start: 20040101

REACTIONS (5)
  - CORNEAL TRANSPLANT [None]
  - DRY EYE [None]
  - DRY MOUTH [None]
  - ONYCHOCLASIS [None]
  - ULCERATIVE KERATITIS [None]
